FAERS Safety Report 6303584-1 (Version None)
Quarter: 2009Q3

REPORT INFORMATION
  Report Type: 
  Country: None (occurrence: None)
  Receive Date: 20090810
  Receipt Date: 20090727
  Transmission Date: 20100115
  Serious: Yes (Death)
  Sender: FDA-Public Use
  Company Number: ES-MYLANLABS-2009S1013261

PATIENT
  Age: 63 Year
  Sex: Male
  Weight: 85 kg

DRUGS (3)
  1. LEVOFLOXACIN [Suspect]
     Indication: PNEUMONIA PRIMARY ATYPICAL
     Dosage: 500MG TWICE DAILY
     Dates: start: 20070602, end: 20070605
  2. DOXYCYCLINE [Suspect]
     Indication: PNEUMONIA PRIMARY ATYPICAL
     Dosage: 100MG TWICE DAILY
     Dates: start: 20070606, end: 20070611
  3. NAPROXEN [Suspect]
     Indication: PNEUMONIA PRIMARY ATYPICAL
     Dosage: 500MG THREE TIME A DAY
     Dates: start: 20070608, end: 20070610

REACTIONS (1)
  - HEPATITIS ACUTE [None]
